FAERS Safety Report 7443706-2 (Version None)
Quarter: 2011Q2

REPORT INFORMATION
  Report Type: 
  Country: None (occurrence: None)
  Receive Date: 20110428
  Receipt Date: 20100819
  Transmission Date: 20111010
  Serious: Yes (Death)
  Sender: FDA-Public Use
  Company Number: CR-PFIZER INC-2011090798

PATIENT
  Age: 83 Year
  Sex: Female

DRUGS (1)
  1. ALTRULINE [Suspect]
     Dosage: 50 MG, UNK

REACTIONS (1)
  - DEATH [None]
